FAERS Safety Report 6059202-3 (Version None)
Quarter: 2009Q1

REPORT INFORMATION
  Report Type: 
  Country: None (occurrence: None)
  Receive Date: 20090130
  Receipt Date: 20090122
  Transmission Date: 20090719
  Serious: Yes (Hospitalization)
  Sender: FDA-Public Use
  Company Number: US-ABBOTT-08P-163-0477137-00

PATIENT
  Sex: Female
  Weight: 67.646 kg

DRUGS (11)
  1. HUMIRA [Suspect]
     Indication: CROHN'S DISEASE
     Route: 058
     Dates: start: 20080326
  2. HUMIRA [Suspect]
  3. REPLIVA [Concomitant]
     Indication: ANAEMIA
     Dates: start: 20080909
  4. ENTOCORT EC [Concomitant]
     Indication: CROHN'S DISEASE
     Dates: start: 20060101, end: 20080901
  5. LEVAQUIN [Concomitant]
     Indication: CROHN'S DISEASE
     Dates: start: 20080101
  6. NEXIUM [Concomitant]
     Indication: GASTROOESOPHAGEAL REFLUX DISEASE
     Dates: start: 19880101
  7. NASCOBAL [Concomitant]
     Indication: ANAEMIA
     Route: 045
     Dates: start: 20080908
  8. VENOFER [Concomitant]
     Indication: ANAEMIA
     Route: 042
     Dates: start: 20080801
  9. VITAMIN B-12 [Concomitant]
     Indication: ANAEMIA
     Route: 058
     Dates: start: 20080301
  10. PREDNISONE [Concomitant]
     Indication: DRUG USE FOR UNKNOWN INDICATION
  11. FLAGYL [Concomitant]
     Indication: DRUG USE FOR UNKNOWN INDICATION

REACTIONS (4)
  - CONDITION AGGRAVATED [None]
  - CROHN'S DISEASE [None]
  - NEPHROLITHIASIS [None]
  - SMALL INTESTINAL OBSTRUCTION [None]
